FAERS Safety Report 8288954-7 (Version None)
Quarter: 2012Q2

REPORT INFORMATION
  Report Type: 
  Country: None (occurrence: None)
  Receive Date: 20120417
  Receipt Date: 20120410
  Transmission Date: 20120825
  Serious: Yes (Hospitalization)
  Sender: FDA-Public Use
  Company Number: US-BAYER-2011-086977

PATIENT
  Age: 44 Year
  Sex: Female
  Weight: 68.027 kg

DRUGS (14)
  1. SINGULAIR [Concomitant]
     Dosage: 5 MG, DAILY
  2. HYDROXYZINE HCL [Concomitant]
     Indication: ECZEMA
     Dosage: UNK
     Dates: start: 20040101
  3. ALBUTEROL [Concomitant]
  4. CALCIUM D [Concomitant]
  5. MULTI-VITAMINS [Concomitant]
  6. YASMIN [Suspect]
     Indication: PREMENSTRUAL SYNDROME
     Dosage: UNK
     Dates: start: 20030401, end: 20100109
  7. FBH HORMONE [Concomitant]
     Indication: PREMENSTRUAL SYNDROME
     Dosage: UNK
     Dates: start: 20030101, end: 20100101
  8. VITAMIN B COMPLEX CAP [Concomitant]
  9. YAZ [Suspect]
     Indication: PREMENSTRUAL SYNDROME
     Dosage: UNK
     Dates: start: 20030401, end: 20100109
  10. IMITREX [Concomitant]
     Dosage: 100 MG, DAILY
     Route: 048
  11. SEREVENT [Concomitant]
     Dosage: 20 MG, DAILY
  12. XYZAL [Concomitant]
     Indication: MULTIPLE ALLERGIES
     Dosage: UNK
     Dates: start: 20080101
  13. OMEGA 3 VITAMINS [Concomitant]
  14. ASCORBIC ACID [Concomitant]

REACTIONS (6)
  - EMOTIONAL DISTRESS [None]
  - PAIN [None]
  - ANXIETY [None]
  - PSYCHOLOGICAL TRAUMA [None]
  - CHOLECYSTITIS INFECTIVE [None]
  - CHOLELITHIASIS [None]
